FAERS Safety Report 4562534-9 (Version None)
Quarter: 2005Q1

REPORT INFORMATION
  Report Type: 
  Country: None (occurrence: None)
  Receive Date: 20050124
  Receipt Date: 20050118
  Transmission Date: 20050727
  Serious: Yes (Hospitalization)
  Sender: FDA-Public Use
  Company Number: 2005-01-1205

PATIENT
  Age: 47 Year
  Sex: Male

DRUGS (8)
  1. PEG-INTRON (PEINTERFERON ALFA-2B) INJECTABLE [Suspect]
     Indication: HEPATITIS C
     Dosage: 150 MCG QWK SUBCUTANEOUS
     Route: 058
     Dates: start: 20040618
  2. REBETOL [Suspect]
     Indication: HEPATITIS C
     Dosage: 1200 MG QD ORAL
     Route: 048
     Dates: start: 20040618
  3. CELEBREX [Concomitant]
  4. LITHIUM [Concomitant]
  5. BUSPAR [Concomitant]
  6. NEURONTIN [Concomitant]
  7. VIARGA (SILDENAFIL CITRATE) [Concomitant]
  8. PREVACID [Concomitant]

REACTIONS (3)
  - ABDOMINAL DISCOMFORT [None]
  - CHEST PAIN [None]
  - PULMONARY EMBOLISM [None]
